FAERS Safety Report 6970273-X (Version None)
Quarter: 2010Q3

REPORT INFORMATION
  Report Type: 
  Country: None (occurrence: None)
  Receive Date: 20100908
  Receipt Date: 20100827
  Transmission Date: 20110219
  Serious: Yes (Hospitalization)
  Sender: FDA-Public Use
  Company Number: NF-CELGENEUS-122-21880-10082770

PATIENT
  Sex: Male
  Weight: 77 kg

DRUGS (9)
  1. REVLIMID [Suspect]
     Indication: MULTIPLE MYELOMA
     Route: 048
     Dates: start: 20100802, end: 20100822
  2. MELPHALAN [Suspect]
     Indication: MULTIPLE MYELOMA
     Route: 048
     Dates: start: 20100802, end: 20100805
  3. PREDNISONE [Suspect]
     Indication: MULTIPLE MYELOMA
     Route: 048
     Dates: start: 20100802, end: 20100805
  4. ASPIRIN [Concomitant]
     Indication: PROPHYLAXIS
     Route: 048
  5. SIMVASTATIN [Concomitant]
     Indication: PROPHYLAXIS
     Route: 048
  6. SELOZOK [Concomitant]
     Indication: HYPERTENSION
     Route: 048
  7. TRIATEC [Concomitant]
     Indication: HYPERTENSION
     Route: 048
  8. SOMAC [Concomitant]
     Route: 048
     Dates: start: 20100626
  9. ONDANSETRON [Concomitant]
     Route: 048
     Dates: start: 20100802, end: 20100805

REACTIONS (2)
  - LUNG ABSCESS [None]
  - PULMONARY EMBOLISM [None]
